FAERS Safety Report 6369514-1 (Version None)
Quarter: 2009Q3

REPORT INFORMATION
  Report Type: 
  Country: None (occurrence: None)
  Receive Date: 20090923
  Receipt Date: 20090918
  Transmission Date: 20100115
  Serious: Yes (Hospitalization, Other)
  Sender: FDA-Public Use
  Company Number: DE-ALLERGAN-0912327US

PATIENT
  Age: 25 Year
  Sex: Female

DRUGS (1)
  1. VISTABEL [Suspect]
     Indication: HYPERHIDROSIS
     Dosage: 50 UNITS, UNK
     Route: 023
     Dates: start: 20090901, end: 20090901

REACTIONS (5)
  - DYSPNOEA [None]
  - GASTRITIS EROSIVE [None]
  - PARAESTHESIA [None]
  - PO2 DECREASED [None]
  - TACHYCARDIA [None]
